FAERS Safety Report 8087904-6 (Version None)
Quarter: 2012Q1

REPORT INFORMATION
  Report Type: 
  Country: None (occurrence: None)
  Receive Date: 20120128
  Receipt Date: 20110411
  Transmission Date: 20120608
  Serious: No
  Sender: FDA-Public Use
  Company Number: US-ABBOTT-11P-163-0718244-00

PATIENT
  Age: 31 Year
  Sex: Female

DRUGS (22)
  1. WELLBUTRIN [Concomitant]
     Indication: BIPOLAR DISORDER
     Dosage: 300MG DAILY
     Route: 048
  2. TRAMADOL HCL [Concomitant]
     Indication: PRODUCT USED FOR UNKNOWN INDICATION
     Dosage: TAKE FOUR TIMES DAILY
     Route: 048
  3. ELMIRON [Concomitant]
     Indication: BLADDER DISORDER
     Route: 048
  4. VITAMIN B-12 [Concomitant]
     Indication: CROHN'S DISEASE
     Dosage: ONCE MONTHLY
     Route: 050
  5. CENTRUM [Concomitant]
     Indication: PRODUCT USED FOR UNKNOWN INDICATION
     Dosage: DAILY
     Route: 048
  6. SOMA [Concomitant]
     Indication: FIBROMYALGIA
     Route: 048
  7. HUMIRA [Suspect]
  8. KLONOPIN [Concomitant]
     Indication: FIBROMYALGIA
     Dosage: EVERY NIGHT AT BEDTIME
     Route: 048
  9. HUMIRA [Suspect]
     Indication: CROHN'S DISEASE
     Dosage: FIRST DOSE
     Dates: start: 20110411
  10. OXYBUTYNIN [Concomitant]
     Indication: BLADDER DISORDER
     Dosage: 100MG DAILY
     Route: 048
  11. FOLIC ACID [Concomitant]
     Indication: CROHN'S DISEASE
     Dosage: 1MG DAILY
     Route: 048
  12. BENTYL [Concomitant]
     Indication: CROHN'S DISEASE
     Route: 048
  13. CLARITIN-D [Concomitant]
     Indication: SEASONAL ALLERGY
     Dosage: PRN
  14. LAMICTAL [Concomitant]
     Indication: BIPOLAR DISORDER
     Dosage: 400MG DAILY
     Route: 048
  15. PENTASA [Concomitant]
     Indication: CROHN'S DISEASE
     Route: 048
  16. VITAMIN D [Concomitant]
     Indication: PRODUCT USED FOR UNKNOWN INDICATION
     Dosage: 4000UNITS DAILY
     Route: 048
  17. HUMIRA [Suspect]
     Dosage: TAKE FIFTEEN DAYS AFTER INITIAL DOSE
  18. ABILIFY [Concomitant]
     Indication: BIPOLAR DISORDER
     Dosage: 4MG DAILY
     Route: 048
  19. SYNTHROID [Concomitant]
     Indication: THYROID DISORDER
     Dosage: 0.025MCG DAILY
     Route: 048
  20. NEURONTIN [Concomitant]
     Indication: FIBROMYALGIA
     Route: 048
  21. PRILOSEC [Concomitant]
     Indication: GASTROOESOPHAGEAL REFLUX DISEASE
     Dosage: OTC, DAILY
     Route: 048
  22. PROBIOTIC SUPPLEMENT [Concomitant]
     Indication: PRODUCT USED FOR UNKNOWN INDICATION

REACTIONS (5)
  - HYPOAESTHESIA [None]
  - PARAESTHESIA ORAL [None]
  - GLOSSITIS [None]
  - PALLOR [None]
  - HYPOAESTHESIA ORAL [None]
